FAERS Safety Report 19474280 (Version 1)
Quarter: 2021Q2

REPORT INFORMATION
  Report Type: Spontaneous
  Country: FR (occurrence: FR)
  Receive Date: 20210629
  Receipt Date: 20210629
  Transmission Date: 20210717
  Serious: Yes (Hospitalization)
  Sender: FDA-Public Use
  Company Number: FR-PFIZER INC-2021730027

PATIENT
  Age: 62 Year
  Sex: Male
  Weight: 66.7 kg

DRUGS (11)
  1. CYTARABINE. [Suspect]
     Active Substance: CYTARABINE
     Indication: B-CELL LYMPHOMA
     Dosage: 30 MG, SINGLE
     Route: 037
     Dates: start: 20201001, end: 20201001
  2. PREDNISOLONE. [Concomitant]
     Active Substance: PREDNISOLONE
     Dosage: UNK, CYCLIC
     Route: 048
     Dates: start: 20201001, end: 20210313
  3. CYCLOPHOSPHAMIDE. [Suspect]
     Active Substance: CYCLOPHOSPHAMIDE
     Indication: B-CELL LYMPHOMA
     Dosage: UNK, CYCLIC
     Route: 041
     Dates: start: 20201001, end: 20210309
  4. METHYLPREDNISOLONE. [Concomitant]
     Active Substance: METHYLPREDNISOLONE
     Dosage: 40 MG, SINGLE
     Route: 037
     Dates: start: 20201001, end: 20201001
  5. VINCRISTINE SULFATE. [Suspect]
     Active Substance: VINCRISTINE SULFATE
     Indication: B-CELL LYMPHOMA
     Dosage: 2 MG, CYCLIC
     Route: 042
     Dates: start: 20201013, end: 20201214
  6. ETOPOSIDE. [Suspect]
     Active Substance: ETOPOSIDE
     Indication: B-CELL LYMPHOMA
     Dosage: 180 MG, SINGLE
     Route: 042
     Dates: start: 20201001, end: 20201001
  7. METHOTREXATE SODIUM. [Suspect]
     Active Substance: METHOTREXATE SODIUM
     Indication: B-CELL LYMPHOMA
     Dosage: 15 MG, SINGLE
     Route: 037
     Dates: start: 20201001, end: 20201001
  8. VINDESINE SULPHATE [Suspect]
     Active Substance: VINDESINE SULFATE
     Indication: B-CELL LYMPHOMA
     Dosage: UNK
     Route: 042
     Dates: start: 20210104, end: 20210309
  9. DOXORUBICIN HCL [Suspect]
     Active Substance: DOXORUBICIN HYDROCHLORIDE
     Indication: B-CELL LYMPHOMA
     Dosage: UNK
     Route: 042
     Dates: start: 20201012, end: 20210309
  10. RITUXIMAB. [Suspect]
     Active Substance: RITUXIMAB
     Indication: B-CELL LYMPHOMA
     Dosage: 700 MG, CYCLIC
     Route: 041
     Dates: start: 20201012, end: 20210309
  11. METHOTREXATE SODIUM. [Suspect]
     Active Substance: METHOTREXATE SODIUM
     Indication: B-CELL LYMPHOMA
     Dosage: UNK, CYCLIC
     Route: 042
     Dates: start: 20201102, end: 20210104

REACTIONS (1)
  - Neuropathy peripheral [Not Recovered/Not Resolved]

NARRATIVE: CASE EVENT DATE: 202101
